FAERS Safety Report 24354485 (Version 1)
Quarter: 2024Q3

REPORT INFORMATION
  Report Type: Spontaneous
  Country: FR (occurrence: FR)
  Receive Date: 20240923
  Receipt Date: 20240923
  Transmission Date: 20241017
  Serious: Yes (Life-Threatening, Other)
  Sender: MYLAN
  Company Number: None

PATIENT
  Age: 53 Year
  Sex: Female
  Weight: 87 kg

DRUGS (5)
  1. SUFENTANIL CITRATE [Suspect]
     Active Substance: SUFENTANIL CITRATE
     Indication: Induction of anaesthesia
     Dosage: 25 MICROGRAM,1 TOTAL
     Route: 042
     Dates: start: 20240827, end: 20240827
  2. DEXAMETHASONE [Suspect]
     Active Substance: DEXAMETHASONE
     Indication: Product used for unknown indication
     Dosage: 8 MILLIGRAM,1 TOTAL
     Route: 042
     Dates: start: 20240827, end: 20240827
  3. PROPOFOL LIPURO [Suspect]
     Active Substance: PROPOFOL
     Indication: Induction of anaesthesia
     Dosage: 200 MILLIGRAM,1 TOTAL
     Route: 042
     Dates: start: 20240827, end: 20240827
  4. ATRACURIUM BESYLATE [Suspect]
     Active Substance: ATRACURIUM BESYLATE
     Indication: Neuromuscular blocking therapy
     Dosage: 40 MILLIGRAM, 1 TOTAL
     Route: 042
     Dates: start: 20240827, end: 20240827
  5. DROPERIDOL [Suspect]
     Active Substance: DROPERIDOL
     Indication: Prophylaxis of nausea and vomiting
     Dosage: 1.25 MILLIGRAM,1 TOTAL
     Route: 042
     Dates: start: 20240827, end: 20240827

REACTIONS (1)
  - Anaphylactic reaction [Recovered/Resolved]

NARRATIVE: CASE EVENT DATE: 20240827
